FAERS Safety Report 9129486 (Version 1)
Quarter: 2013Q1

REPORT INFORMATION
  Report Type: Spontaneous
  Country: FR (occurrence: FR)
  Receive Date: 20130228
  Receipt Date: 20130228
  Transmission Date: 20140127
  Serious: Yes (Hospitalization)
  Sender: FDA-Public Use
  Company Number: FR-GLAXOSMITHKLINE-B0869126A

PATIENT
  Sex: Male

DRUGS (1)
  1. ARIXTRA [Suspect]
     Indication: THROMBOPHLEBITIS
     Dosage: 10MG PER DAY
     Route: 058
     Dates: start: 20130203, end: 20130208

REACTIONS (2)
  - Haematoma [Not Recovered/Not Resolved]
  - Ill-defined disorder [Unknown]
